FAERS Safety Report 17010503 (Version 2)
Quarter: 2019Q4

REPORT INFORMATION
  Report Type: Spontaneous
  Country: CN (occurrence: CN)
  Receive Date: 20191108
  Receipt Date: 20191114
  Transmission Date: 20200122
  Serious: Yes (Other)
  Sender: FDA-Public Use
  Company Number: CN-ASTRAZENECA-2019SF57624

PATIENT
  Age: 57 Year
  Sex: Female

DRUGS (3)
  1. IRESSA [Suspect]
     Active Substance: GEFITINIB
     Indication: NON-SMALL CELL LUNG CANCER
     Dosage: ONE TABLET AT A TIME, QD ORALLY FOR ONE AND A HALF YEARS
     Route: 048
  2. TRADITIONAL CHINESE MEDICINE [Concomitant]
     Active Substance: HERBALS\HOMEOPATHICS
     Indication: DIARRHOEA
     Route: 048
  3. TRADITIONAL CHINESE MEDICINE [Concomitant]
     Active Substance: HERBALS\HOMEOPATHICS
     Indication: ABDOMINAL DISCOMFORT
     Route: 048

REACTIONS (5)
  - Diarrhoea [Recovering/Resolving]
  - Drug resistance [Unknown]
  - Gene mutation [Unknown]
  - Malignant neoplasm progression [Unknown]
  - Neoplasm progression [Unknown]

NARRATIVE: CASE EVENT DATE: 201906
